FAERS Safety Report 5374969-5 (Version None)
Quarter: 2007Q2

REPORT INFORMATION
  Report Type: 
  Country: None (occurrence: None)
  Receive Date: 20070625
  Receipt Date: 20070507
  Transmission Date: 20071010
  Serious: No
  Sender: FDA-Public Use
  Company Number: 07P-163-0366610-00

PATIENT
  Age: 62 Year
  Sex: Female
  Weight: 75.7507 kg

DRUGS (6)
  1. HUMIRA [Suspect]
     Indication: RHEUMATOID ARTHRITIS
     Dosage: 40 MG, 1 IN 2 WK, SUBCUTANEOUS
     Route: 058
     Dates: start: 20041209, end: 20060525
  2. LEFLUNOMIDE [Concomitant]
  3. METHOTREXATE SODIUM [Concomitant]
  4. IBUPROFEN [Concomitant]
  5. RISEDRONATE SODIUM [Concomitant]
  6. FOLIC ACID [Concomitant]

REACTIONS (3)
  - COUGH [None]
  - DYSPNOEA [None]
  - LYMPHOMA [None]
